FAERS Safety Report 16057723 (Version 1)
Quarter: 2019Q1

REPORT INFORMATION
  Report Type: Spontaneous
  Country: US (occurrence: US)
  Receive Date: 20190311
  Receipt Date: 20190311
  Transmission Date: 20190418
  Serious: Yes (Other)
  Sender: FDA-Public Use
  Company Number: US-REGENERON PHARMACEUTICALS, INC.-2019-21345

PATIENT

DRUGS (2)
  1. EYLEA [Suspect]
     Active Substance: AFLIBERCEPT
     Indication: NEOVASCULAR AGE-RELATED MACULAR DEGENERATION
     Dosage: UNK, EVERY 5 TO 6 WEEKS, OD
     Route: 031
     Dates: start: 20140730
  2. EYLEA [Suspect]
     Active Substance: AFLIBERCEPT
     Dosage: UNK, EVERY 5 TO 6 WEEKS, OU
     Route: 031
     Dates: start: 20190227, end: 20190227

REACTIONS (2)
  - Breast cancer [Unknown]
  - Needle issue [Unknown]

NARRATIVE: CASE EVENT DATE: 20190227
